FAERS Safety Report 9026487 (Version 1)
Quarter: 2013Q1

REPORT INFORMATION
  Report Type: Spontaneous
  Country: US (occurrence: None)
  Receive Date: 20130109
  Receipt Date: 20130109
  Transmission Date: 20140127
  Serious: No
  Sender: FDA-Public Use
  Company Number: 2013P1000053

PATIENT
  Age: 70 Year
  Sex: Female

DRUGS (3)
  1. ATIVAN [Suspect]
  2. MORPHINE [Suspect]
  3. PHENERGAN [Suspect]

REACTIONS (4)
  - Hypersensitivity [None]
  - Nausea [None]
  - Blood pressure decreased [None]
  - Metal poisoning [None]
